FAERS Safety Report 25760834 (Version 2)
Quarter: 2025Q4

REPORT INFORMATION
  Report Type: Report from Study
  Country: EU (occurrence: EU)
  Receive Date: 20250904
  Receipt Date: 20251023
  Transmission Date: 20260118
  Serious: Yes (Other)
  Sender: GALPHARM INTERNATIONAL
  Company Number: None

PATIENT
  Sex: Male

DRUGS (9)
  1. ACETAMINOPHEN [Interacting]
     Active Substance: ACETAMINOPHEN
     Indication: Limb injury
     Dosage: UNK
     Route: 065
  2. ACETAMINOPHEN [Interacting]
     Active Substance: ACETAMINOPHEN
     Indication: Nerve injury
  3. PREDNISONE [Suspect]
     Active Substance: PREDNISONE
     Indication: Limb injury
     Route: 065
  4. PREDNISONE [Suspect]
     Active Substance: PREDNISONE
     Indication: Nerve injury
  5. PREDNISONE [Suspect]
     Active Substance: PREDNISONE
  6. PREGABALIN [Interacting]
     Active Substance: PREGABALIN
     Indication: Nerve injury
     Dosage: UNK, BID
     Route: 065
  7. PREGABALIN [Interacting]
     Active Substance: PREGABALIN
     Indication: Limb injury
  8. AMITRIPTYLINE [Interacting]
     Active Substance: AMITRIPTYLINE
     Indication: Nerve injury
     Route: 065
  9. AMITRIPTYLINE [Interacting]
     Active Substance: AMITRIPTYLINE
     Indication: Limb injury

REACTIONS (9)
  - Colour blindness [Not Recovered/Not Resolved]
  - Vision blurred [Unknown]
  - Eye disorder [Unknown]
  - Visual impairment [Not Recovered/Not Resolved]
  - Blindness transient [Not Recovered/Not Resolved]
  - Astigmatism [Not Recovered/Not Resolved]
  - Eye irritation [Unknown]
  - Drug interaction [Unknown]
  - Colour blindness acquired [Not Recovered/Not Resolved]
